FAERS Safety Report 5452147-9 (Version None)
Quarter: 2007Q3

REPORT INFORMATION
  Report Type: 
  Country: None (occurrence: None)
  Receive Date: 20070912
  Receipt Date: 20070831
  Transmission Date: 20080115
  Serious: Yes (Other)
  Sender: FDA-Public Use
  Company Number: 2007US002113

PATIENT
  Age: 42 Year
  Sex: Male

DRUGS (2)
  1. PROGRAF [Suspect]
     Indication: RENAL TRANSPLANT
     Dosage: 0.5 MG, UID/QD; 0.5 MG
  2. MYCOPHENOLATE MOFETIL [Concomitant]

REACTIONS (7)
  - COMPLICATIONS OF TRANSPLANTED KIDNEY [None]
  - DIALYSIS DEVICE COMPLICATION [None]
  - HAEMATURIA [None]
  - HYPERKALAEMIA [None]
  - NEPHROPATHY TOXIC [None]
  - NO THERAPEUTIC RESPONSE [None]
  - RENAL TUBULAR ACIDOSIS [None]
